FAERS Safety Report 5019879-8 (Version None)
Quarter: 2006Q2

REPORT INFORMATION
  Report Type: 
  Country: None (occurrence: None)
  Receive Date: 20060607
  Receipt Date: 20060410
  Transmission Date: 20061013
  Serious: Yes (Other)
  Sender: FDA-Public Use
  Company Number: US-AMGEN-US175926

PATIENT
  Sex: Female
  Weight: 74 kg

DRUGS (4)
  1. PROCRIT [Suspect]
     Indication: ANAEMIA
     Route: 058
     Dates: start: 20051001, end: 20051101
  2. OXYCODONE HCL [Concomitant]
  3. NEURONTIN [Concomitant]
  4. PREDNISONE [Concomitant]

REACTIONS (2)
  - APLASIA PURE RED CELL [None]
  - STAPHYLOCOCCAL INFECTION [None]
